FAERS Safety Report 10233043 (Version 1)
Quarter: 2014Q2

REPORT INFORMATION
  Report Type: Spontaneous
  Country: NL (occurrence: NL)
  Receive Date: 20140612
  Receipt Date: 20140612
  Transmission Date: 20141212
  Serious: Yes (Disabling)
  Sender: FDA-Public Use
  Company Number: NL-ASTRAZENECA-2014SE39364

PATIENT
  Age: 63 Year
  Sex: Female
  Weight: 74 kg

DRUGS (4)
  1. LISINOPRIL [Suspect]
     Indication: PROPHYLAXIS
     Route: 048
     Dates: start: 20140425
  2. LISINOPRIL [Suspect]
     Indication: PROPHYLAXIS
     Route: 048
  3. ACETYLSALICYLZUUR [Concomitant]
     Dosage: , EXTRA INFO: 5 KEER PER WEEK 1, 2 KEER P. W. 2
     Route: 048
     Dates: start: 20040625
  4. ACETYLSALICYLZUUR [Concomitant]
     Dosage: EXTRA INFO: 5 KEER PER WEEK 1, 2 KEER P. W. 2
     Route: 048
     Dates: start: 20040625

REACTIONS (7)
  - Rheumatoid arthritis [Unknown]
  - Migraine [Unknown]
  - Pain in extremity [Recovered/Resolved with Sequelae]
  - Dyspnoea [Not Recovered/Not Resolved]
  - Fatigue [Not Recovered/Not Resolved]
  - Headache [Not Recovered/Not Resolved]
  - Abdominal discomfort [Not Recovered/Not Resolved]
